FAERS Safety Report 23517982 (Version 2)
Quarter: 2024Q4

REPORT INFORMATION
  Report Type: Spontaneous
  Country: US (occurrence: US)
  Receive Date: 20240213
  Receipt Date: 20241005
  Transmission Date: 20250115
  Serious: Yes (Other)
  Sender: GLENMARK
  Company Number: US-GLENMARK PHARMACEUTICALS-2023GMK086379

PATIENT

DRUGS (2)
  1. CARVEDILOL [Suspect]
     Active Substance: CARVEDILOL
     Indication: Heart rate abnormal
     Dosage: 3.125 MILLIGRAM, BID
     Route: 065
  2. CARVEDILOL [Suspect]
     Active Substance: CARVEDILOL
     Dosage: 3.125 MILLIGRAM, QID (TAKING FOUR TABLETS FOR MONTHS NOW)
     Route: 065

REACTIONS (5)
  - Anaphylactic shock [Recovered/Resolved]
  - Cardiac disorder [Recovered/Resolved]
  - Contraindicated product prescribed [Unknown]
  - Drug effective for unapproved indication [Unknown]
  - Product availability issue [Unknown]
